FAERS Safety Report 9709062 (Version 1)
Quarter: 2013Q4

REPORT INFORMATION
  Report Type: Spontaneous
  Country: IN (occurrence: IN)
  Receive Date: 20131125
  Receipt Date: 20131125
  Transmission Date: 20140711
  Serious: Yes (Other)
  Sender: FDA-Public Use
  Company Number: IN-PFIZER INC-2013331407

PATIENT
  Sex: 0

DRUGS (4)
  1. VANCOMYCIN [Suspect]
     Indication: FEBRILE NEUTROPENIA
     Dosage: UNK
     Route: 042
  2. METHOTREXATE SODIUM [Interacting]
     Indication: ACUTE LYMPHOCYTIC LEUKAEMIA
     Dosage: 5 G/M^2
  3. CEFOPERAZONE [Concomitant]
     Dosage: UNK
  4. AMIKACIN [Concomitant]
     Dosage: UNK

REACTIONS (4)
  - Drug interaction [Unknown]
  - Renal impairment [Recovered/Resolved]
  - Toxicity to various agents [Unknown]
  - Mucosal inflammation [Unknown]
